FAERS Safety Report 18875894 (Version 4)
Quarter: 2021Q3

REPORT INFORMATION
  Report Type: Other
  Country: US (occurrence: US)
  Receive Date: 20210211
  Receipt Date: 20210918
  Transmission Date: 20211014
  Serious: Yes (Other)
  Sender: FDA-Public Use
  Company Number: US-ROCHE-2765645

PATIENT
  Sex: Female

DRUGS (9)
  1. ACTEMRA [Suspect]
     Active Substance: TOCILIZUMAB
     Indication: AUTOIMMUNE DISORDER
  2. ATORVASTATIN [Concomitant]
     Active Substance: ATORVASTATIN
  3. ACTEMRA [Suspect]
     Active Substance: TOCILIZUMAB
     Indication: RHEUMATOID ARTHRITIS
     Route: 058
  4. ACTEMRA [Suspect]
     Active Substance: TOCILIZUMAB
  5. METOPROLOL. [Concomitant]
     Active Substance: METOPROLOL
  6. ACTEMRA [Suspect]
     Active Substance: TOCILIZUMAB
  7. ACTEMRA [Suspect]
     Active Substance: TOCILIZUMAB
  8. ELIQUIS [Concomitant]
     Active Substance: APIXABAN
  9. ACTEMRA [Suspect]
     Active Substance: TOCILIZUMAB

REACTIONS (7)
  - Illness [Unknown]
  - Head injury [Unknown]
  - Anaemia [Unknown]
  - Intracardiac mass [Unknown]
  - Swelling [Unknown]
  - Hydrothorax [Unknown]
  - Dyspnoea [Unknown]
